FAERS Safety Report 22605216 (Version 1)
Quarter: 2023Q2

REPORT INFORMATION
  Report Type: Spontaneous
  Country: US (occurrence: US)
  Receive Date: 20230615
  Receipt Date: 20230615
  Transmission Date: 20230722
  Serious: Yes (Life-Threatening, Hospitalization, Other)
  Sender: FDA-Public Use
  Company Number: US-MLMSERVICE-20230601-4322174-1

PATIENT
  Age: 53 Year
  Sex: Female

DRUGS (2)
  1. OXYCODONE HYDROCHLORIDE [Suspect]
     Active Substance: OXYCODONE HYDROCHLORIDE
     Indication: Pain management
     Dosage: 4 DOSAGE FORM
     Route: 065
  2. OXYCODONE HYDROCHLORIDE [Suspect]
     Active Substance: OXYCODONE HYDROCHLORIDE
     Dosage: UNK (DOSE TAPERED)
     Route: 065

REACTIONS (7)
  - Mental status changes [Recovering/Resolving]
  - Drug withdrawal syndrome [Recovering/Resolving]
  - Hyperventilation [Unknown]
  - Alkalosis [Unknown]
  - Chills [Unknown]
  - Nausea [Unknown]
  - Intentional overdose [Unknown]
